FAERS Safety Report 24751580 (Version 1)
Quarter: 2024Q4

REPORT INFORMATION
  Report Type: Spontaneous
  Country: US (occurrence: US)
  Receive Date: 20241219
  Receipt Date: 20241219
  Transmission Date: 20250114
  Serious: No
  Sender: SANOFI AVENTIS
  Company Number: US-SA-2024SA270882

PATIENT
  Age: 21 Year
  Sex: Female

DRUGS (4)
  1. DUPIXENT [Suspect]
     Active Substance: DUPILUMAB
     Indication: Eczema
     Dosage: 600 MG, 1X
     Route: 058
     Dates: start: 20240913, end: 20240913
  2. DUPIXENT [Suspect]
     Active Substance: DUPILUMAB
     Dosage: 300 MG, QOW
     Route: 058
     Dates: start: 202409
  3. HYDROXYZINE [Concomitant]
     Active Substance: HYDROXYZINE HYDROCHLORIDE
  4. PATADAY [Concomitant]
     Active Substance: OLOPATADINE HYDROCHLORIDE

REACTIONS (6)
  - Eczema [Unknown]
  - Pruritus [Unknown]
  - Dermatitis [Unknown]
  - Rash erythematous [Unknown]
  - Skin discolouration [Unknown]
  - Rash [Unknown]

NARRATIVE: CASE EVENT DATE: 20240101
